FAERS Safety Report 7337618-2 (Version None)
Quarter: 2011Q1

REPORT INFORMATION
  Report Type: 
  Country: None (occurrence: None)
  Receive Date: 20110308
  Receipt Date: 20110218
  Transmission Date: 20110831
  Serious: Yes (Other)
  Sender: FDA-Public Use
  Company Number: US-PFIZER INC-WYEUS-WYE-H15222910

PATIENT
  Sex: Female

DRUGS (4)
  1. ATENOLOL [Suspect]
  2. BENICAR HCT [Suspect]
     Dosage: ONCE EVERY MONTH
     Route: 048
     Dates: start: 20100401
  3. ZOLOFT [Suspect]
     Dosage: UNK
     Dates: start: 20100401
  4. PRISTIQ [Suspect]
     Dosage: UNK
     Route: 048
     Dates: start: 20100401

REACTIONS (2)
  - HYPERSOMNIA [None]
  - BLOOD PRESSURE INCREASED [None]
